FAERS Safety Report 10142298 (Version 2)
Quarter: 2014Q2

REPORT INFORMATION
  Report Type: Spontaneous
  Country: US (occurrence: US)
  Receive Date: 20140429
  Receipt Date: 20140429
  Transmission Date: 20141212
  Serious: No
  Sender: FDA-Public Use
  Company Number: US-SPECTRUM PHARMACEUTICALS, INC.-13-Z-US-00170

PATIENT
  Age: 59 Year
  Sex: Male
  Weight: 95 kg

DRUGS (5)
  1. ZEVALIN [Suspect]
     Indication: FOLLICLE CENTRE LYMPHOMA, FOLLICULAR GRADE I, II, III STAGE III
     Dosage: 3.2MG/2ML, SINGLE
     Route: 042
     Dates: start: 201303, end: 201303
  2. VICODIN [Concomitant]
     Indication: PAIN
     Dosage: 10MG/1000MG, DAILY PRN
     Route: 048
     Dates: start: 201305
  3. AMBIEN [Concomitant]
     Indication: INSOMNIA
     Dosage: 10 MG, DAILY PRN
     Route: 048
     Dates: start: 201304
  4. GINSENG                            /00480901/ [Concomitant]
     Indication: ASTHENIA
     Dosage: 500-1000MG, DAILY PRN
     Route: 048
     Dates: start: 20130518
  5. FISH OIL [Concomitant]
     Indication: ROUTINE HEALTH MAINTENANCE
     Dosage: UNK, DAILY
     Route: 048
     Dates: end: 201305

REACTIONS (8)
  - Haemoglobin decreased [Not Recovered/Not Resolved]
  - Haematocrit decreased [Not Recovered/Not Resolved]
  - Red blood cell count decreased [Not Recovered/Not Resolved]
  - Blood testosterone decreased [Not Recovered/Not Resolved]
  - Bone pain [Recovered/Resolved]
  - Asthenia [Not Recovered/Not Resolved]
  - Decreased appetite [Not Recovered/Not Resolved]
  - Weight decreased [Not Recovered/Not Resolved]
